FAERS Safety Report 16753517 (Version 1)
Quarter: 2019Q3

REPORT INFORMATION
  Report Type: Spontaneous
  Country: GB (occurrence: GB)
  Receive Date: 20190829
  Receipt Date: 20190829
  Transmission Date: 20191005
  Serious: Yes (Hospitalization)
  Sender: FDA-Public Use
  Company Number: GB-TEVA-2019-GB-1098583

PATIENT
  Age: 31 Year
  Sex: Male

DRUGS (1)
  1. BISOPROLOL [Suspect]
     Active Substance: BISOPROLOL
     Indication: PALPITATIONS
     Dosage: 2.5 MG
     Route: 048
     Dates: start: 20190625

REACTIONS (2)
  - Bradycardia [Unknown]
  - Circulatory collapse [Unknown]
